FAERS Safety Report 8916253 (Version 1)
Quarter: 2012Q4

REPORT INFORMATION
  Report Type: 
  Country: DE (occurrence: DE)
  Receive Date: 20121120
  Receipt Date: 20121120
  Transmission Date: 20130627
  Serious: Yes (Other)
  Sender: FDA-Public Use
  Company Number: DE-GLAXOSMITHKLINE-D0077655A

PATIENT
  Sex: Male
  Weight: 77.5 kg

DRUGS (1)
  1. AVAMYS [Suspect]
     Indication: POLYP
     Route: 045
     Dates: start: 20120829, end: 20120910

REACTIONS (2)
  - Angioedema [Recovered/Resolved]
  - Lip oedema [Recovered/Resolved]
